FAERS Safety Report 25353139 (Version 2)
Quarter: 2025Q2

REPORT INFORMATION
  Report Type: Report from Study
  Country: JP (occurrence: JP)
  Receive Date: 20250523
  Receipt Date: 20250619
  Transmission Date: 20250716
  Serious: Yes (Hospitalization)
  Sender: EISAI
  Company Number: JP-Eisai-202500955_LEQ_P_1

PATIENT
  Age: 78 Year
  Sex: Male
  Weight: 45 kg

DRUGS (9)
  1. LEQEMBI [Suspect]
     Active Substance: LECANEMAB-IRMB
     Indication: Dementia Alzheimer^s type
     Dates: start: 20240624, end: 20241121
  2. LEQEMBI [Suspect]
     Active Substance: LECANEMAB-IRMB
     Dates: start: 20250120, end: 20250120
  3. ASPIRIN [Concomitant]
     Active Substance: ASPIRIN
  4. ESOMEPRAZOLE [Concomitant]
     Active Substance: ESOMEPRAZOLE
  5. BISOPROLOL FUMARATE [Concomitant]
     Active Substance: BISOPROLOL FUMARATE
  6. PITAVASTATIN CALCIUM [Concomitant]
     Active Substance: PITAVASTATIN CALCIUM
  7. METFORMIN HYDROCHLORIDE [Concomitant]
     Active Substance: METFORMIN HYDROCHLORIDE
  8. GLICLAZIDE [Concomitant]
     Active Substance: GLICLAZIDE
  9. REMINYL [Concomitant]
     Active Substance: GALANTAMINE

REACTIONS (3)
  - Muscular weakness [Unknown]
  - Spinal cord infarction [Unknown]
  - Compression fracture [Unknown]

NARRATIVE: CASE EVENT DATE: 20241122
